FAERS Safety Report 8920220 (Version 3)
Quarter: 2013Q1

REPORT INFORMATION
  Report Type: Report from Study
  Country: US (occurrence: US)
  Receive Date: 20121122
  Receipt Date: 20130118
  Transmission Date: 20140127
  Serious: Yes (Hospitalization)
  Sender: FDA-Public Use
  Company Number: US-ROCHE-1151058

PATIENT
  Age: 45 Year
  Sex: Female

DRUGS (11)
  1. RIBAVIRIN [Suspect]
     Indication: HEPATITIS C
     Route: 048
     Dates: start: 20110711, end: 20111003
  2. RIBAVIRIN [Suspect]
     Route: 065
     Dates: start: 20111115, end: 20121009
  3. PEG-INTERFERON ALFA 2A [Suspect]
     Indication: HEPATITIS C
     Route: 058
     Dates: start: 20111115, end: 20121009
  4. VX-222 [Suspect]
     Indication: HEPATITIS C
     Route: 065
     Dates: start: 20110711, end: 20111003
  5. VX-950 [Suspect]
     Indication: HEPATITIS C
     Dosage: 6 TABLETS/DAY
     Route: 065
     Dates: start: 20110711, end: 20111003
  6. LEVOTHYROXIN [Concomitant]
  7. XANAX [Concomitant]
  8. OXYCODONE [Concomitant]
  9. ZOLOFT [Concomitant]
  10. ALBUTEROL [Concomitant]
     Indication: ASTHMA
  11. BECLOMETHASONE [Concomitant]
     Indication: ASTHMA

REACTIONS (9)
  - Dizziness [Recovered/Resolved]
  - Vomiting [Recovered/Resolved]
  - Vertigo [Recovered/Resolved]
  - Visual impairment [Recovered/Resolved]
  - Migraine [Recovered/Resolved]
  - Back pain [Recovered/Resolved]
  - Abdominal pain upper [Recovered/Resolved]
  - Anxiety [Recovered/Resolved]
  - Nausea [Recovered/Resolved]
